FAERS Safety Report 6831612-3 (Version None)
Quarter: 2010Q3

REPORT INFORMATION
  Report Type: 
  Country: None (occurrence: None)
  Receive Date: 20100712
  Receipt Date: 20100629
  Transmission Date: 20110219
  Serious: Yes (Life-Threatening, Hospitalization)
  Sender: FDA-Public Use
  Company Number: US-GENZYME-CLOF-1000719

PATIENT
  Sex: Male
  Weight: 109 kg

DRUGS (30)
  1. CLOFARABINE [Suspect]
     Indication: ACUTE LYMPHOCYTIC LEUKAEMIA
     Dosage: 40 MG/M2, QDX 4 DAYS
     Route: 042
     Dates: start: 20091014, end: 20091017
  2. CLOFARABINE [Suspect]
     Dosage: 40 MG/M2, QDX5
     Route: 042
     Dates: start: 20090917, end: 20090921
  3. ETOPOSIDE [Suspect]
     Indication: ACUTE LYMPHOCYTIC LEUKAEMIA
     Dosage: 100 MG/M2, QD X 4DAYS
     Route: 042
     Dates: start: 20091014, end: 20091017
  4. ETOPOSIDE [Suspect]
     Dosage: 100 MG/M2, QDX5
     Route: 042
     Dates: start: 20090917, end: 20090921
  5. CYCLOPHOSPHAMIDE [Suspect]
     Indication: ACUTE LYMPHOCYTIC LEUKAEMIA
     Dosage: 440 MG/M2, QD
     Route: 042
     Dates: start: 20091014, end: 20091017
  6. CYCLOPHOSPHAMIDE [Suspect]
     Dosage: 440 MG/M2, QD X 4DAYS
     Route: 042
     Dates: start: 20090917, end: 20090921
  7. NEUPOGEN [Concomitant]
     Indication: ACUTE LYMPHOCYTIC LEUKAEMIA
     Dosage: 300 MCG, UNK
     Route: 058
     Dates: start: 20090922
  8. NEUPOGEN [Concomitant]
     Indication: WHITE BLOOD CELL COUNT INCREASED
     Dosage: 300 MCG, QD
     Route: 058
     Dates: start: 20091018
  9. MORPHINE [Concomitant]
     Indication: PAIN
     Dosage: 5.5 MG, UNK
     Route: 042
     Dates: start: 20090915, end: 20090915
  10. KETOROLAC TROMETHAMINE [Concomitant]
     Indication: PAIN
     Dosage: 30 MG, UNK
     Route: 042
     Dates: start: 20090915, end: 20090915
  11. ONDANSETRON [Concomitant]
     Indication: NAUSEA
     Dosage: 10 MG, UNK
     Route: 042
     Dates: start: 20090915, end: 20090916
  12. ONDANSETRON [Concomitant]
     Indication: VOMITING
  13. OXYCODONE HCL [Concomitant]
     Indication: PAIN
     Dosage: 5 MG, UNK
     Route: 048
     Dates: start: 20090916, end: 20090916
  14. NORMAL SALINE [Concomitant]
     Indication: FLUID REPLACEMENT
     Dosage: 290 ML, UNK
     Route: 042
     Dates: start: 20090916, end: 20090917
  15. ALLOPURINOL [Concomitant]
     Indication: ACUTE LYMPHOCYTIC LEUKAEMIA
     Dosage: 300 MG, UNK
     Route: 042
     Dates: start: 20090916, end: 20090922
  16. DAPSONE [Concomitant]
     Indication: PROPHYLAXIS
     Dosage: 100 MG, QD
     Route: 048
     Dates: start: 20090917
  17. LORAZEPAM [Concomitant]
     Indication: NAUSEA
     Dosage: 2 MG, UNK
     Route: 042
     Dates: start: 20090917, end: 20090922
  18. LORAZEPAM [Concomitant]
     Indication: ANXIETY
  19. DIPHENHYDRAMINE [Concomitant]
     Indication: NAUSEA
     Dosage: 50 MG, UNK
     Route: 042
     Dates: start: 20090917, end: 20090922
  20. DIPHENHYDRAMINE [Concomitant]
     Indication: VOMITING
     Dosage: 50 MG, PRN
     Route: 042
     Dates: start: 20091026
  21. DIPHENHYDRAMINE [Concomitant]
     Dosage: 50 MG, PRN
     Route: 042
     Dates: start: 20090917
  22. METOCLOPRAMIDE [Concomitant]
     Indication: NAUSEA
     Dosage: 50 MG, UNK
     Route: 042
     Dates: start: 20090917, end: 20090922
  23. METOCLOPRAMIDE [Concomitant]
     Indication: VOMITING
     Dosage: 10 MEQ/L, QD X Q6HRS
     Dates: start: 20091026, end: 20091028
  24. METOCLOPRAMIDE [Concomitant]
     Dosage: 10 MG, PRN
     Route: 042
     Dates: start: 20090917
  25. SCOPOLAMINE [Concomitant]
     Indication: NAUSEA
     Dosage: 1.5 MG, UNK
     Route: 062
     Dates: start: 20090917
  26. SCOPOLAMINE [Concomitant]
     Indication: VOMITING
  27. APREPITANT [Concomitant]
     Indication: NAUSEA
     Dosage: 125 MG, UNK
     Route: 048
     Dates: start: 20090918, end: 20090918
  28. ACYCLOVIR [Concomitant]
     Indication: PROPHYLAXIS
     Dosage: 400 MG, BID
     Route: 048
     Dates: start: 20090921
  29. ACYCLOVIR [Concomitant]
     Dosage: 400 MG, Q12HR
     Route: 042
     Dates: start: 20091026
  30. POTASSIUM CHLORIDE [Concomitant]
     Indication: HYPOKALAEMIA
     Dosage: 20 MG, BID
     Route: 048
     Dates: start: 20091001

REACTIONS (6)
  - ALPHA HAEMOLYTIC STREPTOCOCCAL INFECTION [None]
  - FEBRILE NEUTROPENIA [None]
  - HYPOTENSION [None]
  - KLEBSIELLA INFECTION [None]
  - PANCYTOPENIA [None]
  - SEPTIC SHOCK [None]
